FAERS Safety Report 11596767 (Version 1)
Quarter: 2015Q4

REPORT INFORMATION
  Report Type: Spontaneous
  Country: US (occurrence: None)
  Receive Date: 20151005
  Receipt Date: 20151005
  Transmission Date: 20160304
  Serious: Yes (Disabling, Other)
  Sender: FDA-Public Use
  Company Number: None

PATIENT
  Age: 25 Year
  Sex: Female
  Weight: 68.95 kg

DRUGS (7)
  1. LUNESTA [Concomitant]
     Active Substance: ESZOPICLONE
  2. BUPROPRION XL [Concomitant]
     Active Substance: BUPROPION
  3. MELOXICAM. [Concomitant]
     Active Substance: MELOXICAM
  4. BACKLOFEN [Concomitant]
  5. KLONOPIN [Concomitant]
     Active Substance: CLONAZEPAM
  6. PARAGARD T 380A [Suspect]
     Active Substance: COPPER
     Dates: start: 20150427, end: 20151001
  7. VYVANSE [Concomitant]
     Active Substance: LISDEXAMFETAMINE DIMESYLATE

REACTIONS (9)
  - Irritable bowel syndrome [None]
  - Muscle spasms [None]
  - Musculoskeletal disorder [None]
  - Dysgeusia [None]
  - Arthralgia [None]
  - Syncope [None]
  - Fatigue [None]
  - Hypoaesthesia [None]
  - General physical health deterioration [None]

NARRATIVE: CASE EVENT DATE: 20151001
